FAERS Safety Report 21500242 (Version 2)
Quarter: 2023Q2

REPORT INFORMATION
  Report Type: Spontaneous
  Country: CA (occurrence: CA)
  Receive Date: 20221024
  Receipt Date: 20230403
  Transmission Date: 20230722
  Serious: Yes (Hospitalization)
  Sender: FDA-Public Use
  Company Number: CA-JNJFOC-20221033251

PATIENT
  Age: 13 Year
  Sex: Female
  Weight: 70.2 kg

DRUGS (3)
  1. ACETAMINOPHEN [Suspect]
     Active Substance: ACETAMINOPHEN
     Indication: Headache
     Dosage: 975 MG ONE EVERY 4 HOURS / EVERY 4 HOURS AS NEEDED
     Route: 048
     Dates: start: 20210917, end: 20210917
  2. IBUPROFEN [Suspect]
     Active Substance: IBUPROFEN
     Indication: Headache
     Dosage: 400MG ONE EVERY 6 HOURS/ EVERY 6 HOURS AS NEEDED
     Route: 048
     Dates: start: 20210917, end: 20210917
  3. METOCLOPRAMIDE [Concomitant]
     Active Substance: METOCLOPRAMIDE
     Indication: Product used for unknown indication
     Dosage: EVERY 30 MINUTES AS NEEDED
     Route: 042
     Dates: start: 20210916, end: 20210916

REACTIONS (1)
  - Medication overuse headache [Recovered/Resolved]

NARRATIVE: CASE EVENT DATE: 20210917
